FAERS Safety Report 9398426 (Version 3)
Quarter: 2013Q3

REPORT INFORMATION
  Report Type: Spontaneous
  Country: JP (occurrence: JP)
  Receive Date: 20130712
  Receipt Date: 20130731
  Transmission Date: 20140515
  Serious: Yes (Other)
  Sender: FDA-Public Use
  Company Number: JP-PFIZER INC-2013178595

PATIENT
  Age: 84 Year
  Sex: Female
  Weight: 38.5 kg

DRUGS (10)
  1. ZYVOX [Suspect]
     Indication: STAPHYLOCOCCAL INFECTION
     Dosage: 600 MG, 2X/DAY
     Route: 041
     Dates: start: 20130606, end: 20130611
  2. CLINDAMYCIN [Concomitant]
     Indication: ARTHRITIS
     Dosage: 600 MG, 3X/DAY
     Route: 041
     Dates: start: 20130529
  3. CUBICIN [Concomitant]
     Indication: ARTHRITIS
     Dosage: 120 MG, 1X/DAY
     Route: 041
     Dates: start: 20130531, end: 20130605
  4. PREDNISOLONE [Concomitant]
     Indication: RHEUMATOID ARTHRITIS
     Dosage: 10 MG, 1X/DAY
     Route: 048
  5. RIMATIL [Concomitant]
     Indication: RHEUMATOID ARTHRITIS
     Dosage: 100 MG, 2X/DAY
     Route: 048
  6. CELECOX [Concomitant]
     Indication: RHEUMATOID ARTHRITIS
     Dosage: 100 MG, 2X/DAY
     Route: 048
  7. TRAMCET [Concomitant]
     Indication: RHEUMATOID ARTHRITIS
     Dosage: UNKNOWN DOSE, TWICE DAILY
     Route: 048
  8. TAKEPRON OD [Concomitant]
     Indication: GASTRITIS
     Dosage: 15 MG, 1X/DAY
     Route: 048
  9. LASIX [Concomitant]
     Indication: CARDIAC FAILURE CHRONIC
     Dosage: 10 MG, 1X/DAY
     Route: 048
  10. MAINTATE [Concomitant]
     Indication: CARDIAC FAILURE CHRONIC
     Dosage: 0.6 MG, 1X/DAY
     Route: 048

REACTIONS (1)
  - Hyponatraemia [Recovering/Resolving]
